FAERS Safety Report 11512353 (Version 1)
Quarter: 2015Q3

REPORT INFORMATION
  Report Type: Spontaneous
  Country: US (occurrence: US)
  Receive Date: 20150916
  Receipt Date: 20150916
  Transmission Date: 20151125
  Serious: No
  Sender: FDA-Public Use
  Company Number: US-GLENMARK PHARMACEUTICALS INC, USA.-2014GMK011160

PATIENT
  Age: 21 Year
  Sex: Female

DRUGS (5)
  1. LUPRON DEPOT-PED [Suspect]
     Active Substance: LEUPROLIDE ACETATE
     Dosage: 11.25 MG, EVERY 3 MONTHS
     Dates: start: 201103, end: 201404
  2. NORETHINDRONE ACETATE. [Suspect]
     Active Substance: NORETHINDRONE ACETATE
     Dosage: 5 MG, QD
     Dates: start: 201103
  3. LUPRON DEPOT-PED [Suspect]
     Active Substance: LEUPROLIDE ACETATE
     Dosage: 3.75 MG, EVERY MONTH
     Dates: start: 201308
  4. NORETHINDRONE ACETATE. [Suspect]
     Active Substance: NORETHINDRONE ACETATE
     Dosage: 5 MG, QD
     Dates: start: 201404, end: 201405
  5. LUPRON DEPOT-PED [Suspect]
     Active Substance: LEUPROLIDE ACETATE
     Dosage: 3.75 MG, EVERY MONTH
     Dates: start: 201404, end: 201405

REACTIONS (3)
  - Vulvovaginal pain [Unknown]
  - Vulvovaginal burning sensation [Unknown]
  - Bone density abnormal [Unknown]

NARRATIVE: CASE EVENT DATE: 201109
